FAERS Safety Report 15355071 (Version 1)
Quarter: 2018Q3

REPORT INFORMATION
  Report Type: Spontaneous
  Country: US (occurrence: US)
  Receive Date: 20180906
  Receipt Date: 20180906
  Transmission Date: 20181010
  Serious: No
  Sender: FDA-Public Use
  Company Number: US-PFIZER INC-2018352365

PATIENT
  Age: 59 Year
  Sex: Male
  Weight: 136.5 kg

DRUGS (1)
  1. CHANTIX [Suspect]
     Active Substance: VARENICLINE TARTRATE
     Indication: SMOKING CESSATION THERAPY
     Dosage: UNK
     Dates: start: 2007

REACTIONS (3)
  - Drug hypersensitivity [Unknown]
  - Abnormal dreams [Unknown]
  - Mood altered [Unknown]
